FAERS Safety Report 24107532 (Version 1)
Quarter: 2024Q3

REPORT INFORMATION
  Report Type: Spontaneous
  Country: CA (occurrence: CA)
  Receive Date: 20240718
  Receipt Date: 20240718
  Transmission Date: 20241016
  Serious: Yes (Other)
  Sender: NOVO NORDISK
  Company Number: None

PATIENT
  Age: 14 Year
  Sex: Male

DRUGS (6)
  1. NORDITROPIN [Suspect]
     Active Substance: SOMATROPIN
     Dosage: 1 DOSAGE FORM
     Route: 058
  2. NORDITROPIN [Suspect]
     Active Substance: SOMATROPIN
     Dosage: 1 DF 1 EVERY 1 WEEKS
     Route: 058
  3. NORDITROPIN [Suspect]
     Active Substance: SOMATROPIN
     Indication: Short stature
     Dosage: 2 MG 1 EVERY 1 DAYS
     Route: 058
  4. NORDITROPIN [Suspect]
     Active Substance: SOMATROPIN
     Dosage: 2550 ?G 1 EVERY 1 WEEKS
     Route: 058
  5. HEDERA HELIX [Concomitant]
     Active Substance: HEDERA HELIX FLOWERING TWIG\HERBALS
     Indication: Product used for unknown indication
     Dosage: UNK
  6. FISH OIL\OMEGA-3 FATTY ACIDS [Concomitant]
     Active Substance: FISH OIL\OMEGA-3 FATTY ACIDS
     Indication: Product used for unknown indication
     Dosage: UNK

REACTIONS (8)
  - Haematocrit decreased [Unknown]
  - Haemoglobin decreased [Unknown]
  - Insulin-like growth factor increased [Unknown]
  - Knee deformity [Unknown]
  - Ulna fracture [Unknown]
  - Urine analysis abnormal [Unknown]
  - Wrist fracture [Unknown]
  - Product prescribing error [Unknown]
